FAERS Safety Report 6911990-7 (Version None)
Quarter: 2010Q3

REPORT INFORMATION
  Report Type: 
  Country: None (occurrence: None)
  Receive Date: 20100806
  Receipt Date: 20080506
  Transmission Date: 20110219
  Serious: No
  Sender: FDA-Public Use
  Company Number: US-PFIZER INC-2004240969US

PATIENT
  Sex: Female
  Weight: 74.39 kg

DRUGS (2)
  1. DETROL LA [Suspect]
     Indication: HYPERTONIC BLADDER
     Route: 065
     Dates: start: 20040801
  2. STOOL SOFTENER [Concomitant]
     Route: 065

REACTIONS (5)
  - DRUG EFFECT DECREASED [None]
  - DRUG INEFFECTIVE [None]
  - DRY MOUTH [None]
  - NASOPHARYNGITIS [None]
  - URINE OUTPUT DECREASED [None]
